FAERS Safety Report 17255616 (Version 1)
Quarter: 2020Q1

REPORT INFORMATION
  Report Type: Spontaneous
  Country: IT (occurrence: IT)
  Receive Date: 20200110
  Receipt Date: 20200110
  Transmission Date: 20200409
  Serious: Yes (Hospitalization)
  Sender: FDA-Public Use
  Company Number: IT-AUROBINDO-AUR-APL-2020-001583

PATIENT
  Age: 73 Year
  Sex: Male

DRUGS (4)
  1. TENORMIN [Concomitant]
     Active Substance: ATENOLOL
     Indication: CARDIAC FIBRILLATION
     Dosage: UNK
     Route: 065
  2. GEMCITABINE. [Suspect]
     Active Substance: GEMCITABINE
     Indication: LUNG NEOPLASM
     Dosage: UNK
     Route: 042
     Dates: start: 20190903
  3. PRADAXA [Concomitant]
     Active Substance: DABIGATRAN ETEXILATE MESYLATE
     Indication: CIRCULATING ANTICOAGULANT
     Dosage: UNK
     Route: 065
  4. CARBOPLATIN. [Suspect]
     Active Substance: CARBOPLATIN
     Indication: LUNG NEOPLASM
     Dosage: UNK
     Route: 042
     Dates: start: 20190903

REACTIONS (4)
  - Dysgeusia [Recovered/Resolved]
  - Abdominal pain [Recovered/Resolved]
  - Rhinitis [Recovered/Resolved]
  - Constipation [Recovered/Resolved]
